FAERS Safety Report 16229004 (Version 1)
Quarter: 2019Q2

REPORT INFORMATION
  Report Type: Spontaneous
  Country: US (occurrence: US)
  Receive Date: 20190319
  Receipt Date: 20190319
  Transmission Date: 20190711
  Serious: Yes (Hospitalization)
  Sender: FDA-Public Use
  Company Number: None

PATIENT
  Age: 77 Year
  Sex: Male
  Weight: 88.6 kg

DRUGS (1)
  1. PEMBROLIZUMAB 200MG IV [Suspect]
     Active Substance: PEMBROLIZUMAB
     Indication: SQUAMOUS CELL CARCINOMA OF HEAD AND NECK
     Route: 042
     Dates: start: 20190204

REACTIONS (8)
  - Liver function test increased [None]
  - Decreased appetite [None]
  - Dehydration [None]
  - Diarrhoea [None]
  - Aspartate aminotransferase increased [None]
  - Fluid intake reduced [None]
  - Alanine aminotransferase increased [None]
  - Fatigue [None]

NARRATIVE: CASE EVENT DATE: 20190318
